FAERS Safety Report 24256442 (Version 1)
Quarter: 2024Q3

REPORT INFORMATION
  Report Type: Spontaneous
  Country: CN (occurrence: CN)
  Receive Date: 20240828
  Receipt Date: 20240828
  Transmission Date: 20241017
  Serious: Yes (Hospitalization, Other)
  Sender: ACCORD
  Company Number: CN-Accord-442437

PATIENT
  Age: 75 Year
  Sex: Female
  Weight: 60 kg

DRUGS (7)
  1. DEXMEDETOMIDINE HYDROCHLORIDE [Suspect]
     Active Substance: DEXMEDETOMIDINE HYDROCHLORIDE
     Indication: Sedative therapy
     Dosage: LOADING DOSE-0.3  UG/KG FOR MORE THAN 10  MIN, THEN CONTINUOUS ADMINISTRATION OF 0.4 UG/KG PER HOUR
     Route: 042
  2. ATROPINE [Concomitant]
     Active Substance: ATROPINE
     Indication: Bradycardia
  3. ESMOLOL HYDROCHLORIDE [Concomitant]
     Active Substance: ESMOLOL HYDROCHLORIDE
     Indication: Tachycardia
  4. NOREPINEPHRINE [Concomitant]
     Active Substance: NOREPINEPHRINE\NOREPINEPHRINE BITARTRATE
     Indication: Hypotension
  5. URAPIDIL HYDROCHLORIDE [Concomitant]
     Active Substance: URAPIDIL HYDROCHLORIDE
     Indication: Hypertension
  6. LIDOCAINE HYDROCHLORIDE [Concomitant]
     Active Substance: LIDOCAINE HYDROCHLORIDE
     Indication: Local anaesthesia
  7. ROPIVACAINE [Concomitant]
     Active Substance: ROPIVACAINE
     Dosage: 0.75%
     Route: 037

REACTIONS (2)
  - Delirium [Recovered/Resolved]
  - Dysphoria [Recovered/Resolved]
